FAERS Safety Report 16403839 (Version 2)
Quarter: 2019Q4

REPORT INFORMATION
  Report Type: Report from Study
  Country: FR (occurrence: FR)
  Receive Date: 20190607
  Receipt Date: 20191019
  Transmission Date: 20200122
  Serious: Yes (Death, Hospitalization)
  Sender: FDA-Public Use
  Company Number: FR-ROCHE-2312435

PATIENT
  Age: 51 Year
  Sex: Male
  Weight: 68.7 kg

DRUGS (5)
  1. LEVOFOLINATE [LEVOFOLINIC ACID] [Concomitant]
     Active Substance: LEVOLEUCOVORIN
     Route: 042
     Dates: start: 20190506, end: 20190506
  2. BEVACIZUMAB. [Suspect]
     Active Substance: BEVACIZUMAB
     Indication: PANCREATIC CARCINOMA
     Dosage: ONSET DATE: 06/MAY/2019
     Route: 042
  3. 5-FLUOROURACIL [FLUOROURACIL] [Concomitant]
     Active Substance: FLUOROURACIL
     Route: 042
     Dates: start: 20190506, end: 20190506
  4. CALCIUM FOLINATE [Concomitant]
     Active Substance: LEUCOVORIN CALCIUM
     Dosage: 200 MG/M2
     Route: 042
     Dates: start: 20190506, end: 20190506
  5. IRINOTECAN [Concomitant]
     Active Substance: IRINOTECAN
     Route: 042
     Dates: start: 20190506, end: 20190506

REACTIONS (3)
  - Cushing^s syndrome [Not Recovered/Not Resolved]
  - Hypokalaemia [Unknown]
  - Thrombocytopenia [Not Recovered/Not Resolved]

NARRATIVE: CASE EVENT DATE: 20190429
